FAERS Safety Report 12707120 (Version 1)
Quarter: 2016Q3

REPORT INFORMATION
  Report Type: Spontaneous
  Country: PL (occurrence: PL)
  Receive Date: 20160901
  Receipt Date: 20160901
  Transmission Date: 20161109
  Serious: Yes (Death)
  Sender: FDA-Public Use
  Company Number: PL-BAYER-2016-163295

PATIENT

DRUGS (4)
  1. COTRIMOXAZOLE [Concomitant]
     Active Substance: SULFAMETHOXAZOLE\TRIMETHOPRIM
     Indication: INFECTION PROPHYLAXIS
     Dosage: 100 MG, BIW
     Route: 048
  2. FLUCONAZOLE. [Concomitant]
     Active Substance: FLUCONAZOLE
     Indication: INFECTION PROPHYLAXIS
     Dosage: 100 MG, QD
     Route: 048
  3. CIPROBAY [Suspect]
     Active Substance: CIPROFLOXACIN
     Indication: INFECTION PROPHYLAXIS
     Dosage: 500 MG, BID
     Route: 048
  4. ACYCLOVIR [ACICLOVIR] [Concomitant]
     Active Substance: ACYCLOVIR
     Indication: INFECTION PROPHYLAXIS
     Dosage: 800 MG, QD
     Route: 048

REACTIONS (3)
  - Drug ineffective [None]
  - Septic shock [Fatal]
  - Urinary tract infection bacterial [Fatal]
